FAERS Safety Report 5320866-0 (Version None)
Quarter: 2007Q2

REPORT INFORMATION
  Report Type: 
  Country: None (occurrence: None)
  Receive Date: 20070504
  Receipt Date: 20070427
  Transmission Date: 20071010
  Serious: Yes (Other)
  Sender: FDA-Public Use
  Company Number: 20050042USST

PATIENT
  Age: 7 Year
  Sex: Male
  Weight: 15 kg

DRUGS (3)
  1. CARNITOR IV [Suspect]
     Dosage: 1 G TID ORAL
     Route: 048
     Dates: start: 20050201
  2. CARNITOR ORAL SOLUTION [Suspect]
     Dosage: 500 MG TID ORAL
     Route: 048
     Dates: start: 20050801
  3. CARNITOR (SHIRE FROM UK) [Suspect]
     Dosage: ORAL
     Route: 048
     Dates: start: 20060201

REACTIONS (5)
  - ABSCESS INTESTINAL [None]
  - ABSCESS ORAL [None]
  - DRUG HYPERSENSITIVITY [None]
  - FURUNCLE [None]
  - GENERAL PHYSICAL HEALTH DETERIORATION [None]
